FAERS Safety Report 10187242 (Version 2)
Quarter: 2014Q2

REPORT INFORMATION
  Report Type: Report from Study
  Country: BD (occurrence: BD)
  Receive Date: 20140522
  Receipt Date: 20140623
  Transmission Date: 20141212
  Serious: Yes (Other)
  Sender: FDA-Public Use
  Company Number: PHHY2014BD060391

PATIENT
  Age: 45 Year
  Sex: Female

DRUGS (4)
  1. ACLASTA [Suspect]
     Indication: OSTEOPOROSIS
     Dosage: 1 DF, UNK
     Route: 042
     Dates: start: 20140404
  2. ACLASTA [Suspect]
     Indication: HEADACHE
  3. ACLASTA [Suspect]
     Indication: NECK PAIN
  4. ACLASTA [Suspect]
     Indication: ARTHRALGIA

REACTIONS (4)
  - Osteomyelitis [Unknown]
  - Eating disorder [Unknown]
  - General physical health deterioration [Unknown]
  - Irritability [Unknown]
